FAERS Safety Report 7229090-8 (Version None)
Quarter: 2011Q1

REPORT INFORMATION
  Report Type: 
  Country: None (occurrence: None)
  Receive Date: 20110117
  Receipt Date: 20101123
  Transmission Date: 20110831
  Serious: Yes (Other)
  Sender: FDA-Public Use
  Company Number: US-NAPPMUNDI-USA-2010-0056253

PATIENT
  Sex: Male

DRUGS (3)
  1. OXYCONTIN [Suspect]
     Indication: SPINAL FRACTURE
     Dosage: UNK
     Dates: start: 19990101
  2. OXYCONTIN [Suspect]
     Indication: PAIN
  3. OXYCONTIN [Suspect]
     Indication: GASTRIC OPERATION

REACTIONS (3)
  - PAIN [None]
  - CONVULSION [None]
  - MYOCARDIAL INFARCTION [None]
